FAERS Safety Report 6255099-7 (Version None)
Quarter: 2009Q3

REPORT INFORMATION
  Report Type: 
  Country: None (occurrence: None)
  Receive Date: 20090702
  Receipt Date: 20090622
  Transmission Date: 20100115
  Serious: Yes (Hospitalization, Other)
  Sender: FDA-Public Use
  Company Number: JP-PFIZER INC-2009206853

PATIENT
  Age: 75 Year

DRUGS (5)
  1. SUNITINIB MALATE [Suspect]
     Indication: RENAL CELL CARCINOMA
     Dosage: 37.5 MG, 1X/DAY
     Route: 048
     Dates: start: 20090327
  2. THYRADIN-S [Concomitant]
     Dosage: UNK
     Route: 048
     Dates: start: 20090407
  3. RINDERON [Concomitant]
     Dosage: UNK
     Route: 042
     Dates: start: 20090307
  4. DEPAKENE [Concomitant]
     Dosage: UNK
     Route: 048
     Dates: start: 20090304
  5. TAKEPRON [Concomitant]
     Dosage: UNK
     Route: 048

REACTIONS (2)
  - ORAL DISCHARGE [None]
  - WHITE BLOOD CELL COUNT DECREASED [None]
